FAERS Safety Report 8965860 (Version 1)
Quarter: 2012Q4

REPORT INFORMATION
  Report Type: 
  Country: None (occurrence: US)
  Receive Date: 20121214
  Receipt Date: 20121214
  Transmission Date: 20130627
  Serious: No
  Sender: FDA-Public Use
  Company Number: US-TEVA-373128USA

PATIENT
  Sex: Male

DRUGS (1)
  1. QVAR [Suspect]

REACTIONS (1)
  - Drug ineffective [Unknown]
